FAERS Safety Report 5264707-9 (Version None)
Quarter: 2007Q1

REPORT INFORMATION
  Report Type: 
  Country: None (occurrence: None)
  Receive Date: 20061117
  Receipt Date: 20051205
  Transmission Date: 20070707
  Serious: Yes (Hospitalization)
  Sender: FDA-Public Use
  Company Number: US-JNJFOC-20051005143

PATIENT
  Sex: Female

DRUGS (1)
  1. LEVAQUIN [Suspect]
     Indication: BACTERIAL INFECTION
     Dosage: 500 MG, 1 IN 1 DAY
     Dates: start: 20051008, end: 20051013

REACTIONS (4)
  - DECREASED APPETITE [None]
  - INSOMNIA [None]
  - RASH PRURITIC [None]
  - VOMITING [None]
